FAERS Safety Report 18590999 (Version 2)
Quarter: 2021Q1

REPORT INFORMATION
  Report Type: Spontaneous
  Country: DK (occurrence: DK)
  Receive Date: 20201208
  Receipt Date: 20210208
  Transmission Date: 20210419
  Serious: Yes (Hospitalization)
  Sender: FDA-Public Use
  Company Number: DK-TEVA-2020-DK-1856055

PATIENT
  Age: 48 Year
  Sex: Male

DRUGS (1)
  1. PREDNISOLONE. [Suspect]
     Active Substance: PREDNISOLONE
     Indication: EVIDENCE BASED TREATMENT
     Dosage: 25 MILLIGRAM DAILY;
     Route: 065

REACTIONS (3)
  - Whipple^s disease [Unknown]
  - Unmasking of previously unidentified disease [Unknown]
  - VIth nerve paralysis [Unknown]
